FAERS Safety Report 25993722 (Version 1)
Quarter: 2025Q4

REPORT INFORMATION
  Report Type: Other
  Country: CA (occurrence: CA)
  Receive Date: 20251104
  Receipt Date: 20251104
  Transmission Date: 20260118
  Serious: Yes (Hospitalization, Other)
  Sender: APOTEX
  Company Number: CA-PGRTD-001154477

PATIENT
  Age: 63 Year
  Sex: Male
  Weight: 81.4 kg

DRUGS (1)
  1. TERIFLUNOMIDE [Suspect]
     Active Substance: TERIFLUNOMIDE
     Indication: Product used for unknown indication
     Dosage: 14 MILLIGRAM, QD
     Route: 048

REACTIONS (2)
  - Myocardial fibrosis [Recovering/Resolving]
  - Heart failure with reduced ejection fraction [Recovering/Resolving]
